FAERS Safety Report 7208970-3 (Version None)
Quarter: 2011Q1

REPORT INFORMATION
  Report Type: 
  Country: None (occurrence: None)
  Receive Date: 20110104
  Receipt Date: 20101221
  Transmission Date: 20110831
  Serious: Yes (Hospitalization)
  Sender: FDA-Public Use
  Company Number: PHHY2010RU86823

PATIENT
  Age: 70 Year
  Sex: Female

DRUGS (2)
  1. MIACALCIN [Suspect]
     Indication: OSTEOPOROSIS
     Route: 045
  2. CALCIUM [Concomitant]

REACTIONS (2)
  - PAIN [None]
  - COMPRESSION FRACTURE [None]
